FAERS Safety Report 6465185-4 (Version None)
Quarter: 2009Q4

REPORT INFORMATION
  Report Type: 
  Country: None (occurrence: None)
  Receive Date: 20091124
  Receipt Date: 20091022
  Transmission Date: 20100525
  Serious: Yes (Death)
  Sender: FDA-Public Use
  Company Number: ADR47362009

PATIENT
  Age: 87 Year
  Sex: Female

DRUGS (10)
  1. RISPERIDONE [Suspect]
  2. ROPINIROLE HYDROCHLORIDE [Concomitant]
  3. AMOXICILLIN TRIHYDRATE [Concomitant]
  4. ASPIRIN [Concomitant]
  5. CARBIMAZOLE [Concomitant]
  6. DIGOXIN [Concomitant]
  7. FUROSEMIDE [Concomitant]
  8. LACTOSE [Concomitant]
  9. SINEMET [Concomitant]
  10. SPARTEINE SULPHATE [Concomitant]

REACTIONS (2)
  - MEDICATION ERROR [None]
  - WRONG DRUG ADMINISTERED [None]
